FAERS Safety Report 5378942-2 (Version None)
Quarter: 2007Q3

REPORT INFORMATION
  Report Type: 
  Country: None (occurrence: None)
  Receive Date: 20070705
  Receipt Date: 20070703
  Transmission Date: 20080115
  Serious: Yes (Hospitalization)
  Sender: FDA-Public Use
  Company Number: FRWYE967904JUL07

PATIENT
  Age: 4 Year
  Sex: Female
  Weight: 17 kg

DRUGS (4)
  1. ADVIL ENFANTS ET NOURRISSONS [Suspect]
     Indication: PYREXIA
     Dosage: UNKNOWN
     Route: 048
     Dates: start: 20070603, end: 20070604
  2. ADVIL ENFANTS ET NOURRISSONS [Suspect]
     Indication: TOOTHACHE
  3. DOLIPRANE [Concomitant]
     Indication: TOOTHACHE
     Dosage: UNKNOWN
     Dates: start: 20070603
  4. DOLIPRANE [Concomitant]
     Indication: PYREXIA

REACTIONS (6)
  - ANAEMIA [None]
  - CELLULITIS [None]
  - DYSPHAGIA [None]
  - MASS [None]
  - PAIN [None]
  - TOOTH ABSCESS [None]
